FAERS Safety Report 10076101 (Version 1)
Quarter: 2014Q2

REPORT INFORMATION
  Report Type: Spontaneous
  Country: US (occurrence: US)
  Receive Date: 20140414
  Receipt Date: 20140414
  Transmission Date: 20141212
  Serious: No
  Sender: FDA-Public Use
  Company Number: US-PFIZER INC-2014100208

PATIENT
  Age: 55 Year
  Sex: Female
  Weight: 56.69 kg

DRUGS (2)
  1. LYRICA [Suspect]
     Indication: PROCEDURAL PAIN
     Dosage: 75 MG, 2X/DAY
     Route: 048
     Dates: start: 20140218, end: 2014
  2. LYRICA [Suspect]
     Indication: CARPAL TUNNEL SYNDROME
     Dosage: 50 MG, 3X/DAY
     Route: 048
     Dates: start: 2014, end: 20140403

REACTIONS (1)
  - Hypoaesthesia [Not Recovered/Not Resolved]
